FAERS Safety Report 15432217 (Version 3)
Quarter: 2020Q1

REPORT INFORMATION
  Report Type: Report from Study
  Country: None (occurrence: PR)
  Receive Date: 20180926
  Receipt Date: 20200124
  Transmission Date: 20200409
  Serious: Yes (Other)
  Sender: FDA-Public Use
  Company Number: PR-ABBVIE-18K-131-2498645-00

PATIENT
  Sex: Female
  Weight: 69.01 kg

DRUGS (2)
  1. HUMIRA [Suspect]
     Active Substance: ADALIMUMAB
     Indication: RHEUMATOID ARTHRITIS
     Route: 058
  2. HUMIRA [Suspect]
     Active Substance: ADALIMUMAB
     Indication: RHEUMATOID ARTHRITIS
     Route: 058
     Dates: start: 20130226

REACTIONS (5)
  - Blindness unilateral [Not Recovered/Not Resolved]
  - Macular oedema [Not Recovered/Not Resolved]
  - Cataract [Unknown]
  - Limb injury [Not Recovered/Not Resolved]
  - Blindness [Not Recovered/Not Resolved]
